FAERS Safety Report 11601846 (Version 2)
Quarter: 2015Q4

REPORT INFORMATION
  Report Type: Spontaneous
  Country: US (occurrence: US)
  Receive Date: 20151006
  Receipt Date: 20151008
  Transmission Date: 20160304
  Serious: No
  Sender: FDA-Public Use
  Company Number: US-AMGEN-USASP2015047538

PATIENT
  Age: 66 Year
  Sex: Female

DRUGS (2)
  1. VITAMIN B12 [Concomitant]
     Active Substance: CYANOCOBALAMIN
     Indication: ANAEMIA
     Dosage: UNK
  2. PROLIA [Suspect]
     Active Substance: DENOSUMAB
     Indication: OSTEOPENIA
     Dosage: UNK UNK, Q6MO
     Route: 065

REACTIONS (16)
  - Arthralgia [Unknown]
  - Skin mass [Not Recovered/Not Resolved]
  - Hyperaesthesia [Unknown]
  - Skin discolouration [Unknown]
  - Joint range of motion decreased [Unknown]
  - Blood cholesterol increased [Unknown]
  - Joint swelling [Unknown]
  - Contusion [Unknown]
  - Drug ineffective [Unknown]
  - Bone pain [Unknown]
  - Pain in extremity [Unknown]
  - Limb discomfort [Unknown]
  - Hypercholesterolaemia [Unknown]
  - Pain [Unknown]
  - Mass [Unknown]
  - Erythema [Recovering/Resolving]

NARRATIVE: CASE EVENT DATE: 201505
